FAERS Safety Report 7052551-1 (Version None)
Quarter: 2010Q4

REPORT INFORMATION
  Report Type: 
  Country: None (occurrence: None)
  Receive Date: 20101019
  Receipt Date: 20101011
  Transmission Date: 20110411
  Serious: Yes (Hospitalization)
  Sender: FDA-Public Use
  Company Number: US-PFIZER INC-2010128922

PATIENT
  Sex: Female

DRUGS (7)
  1. ADRIAMYCIN PFS [Suspect]
     Indication: BREAST CANCER
     Dosage: UNK
     Dates: start: 20100119, end: 20100323
  2. CYTOXAN [Suspect]
     Indication: BREAST CANCER
     Dosage: UNK
     Dates: start: 20100119, end: 20100323
  3. CYMBALTA [Concomitant]
     Dosage: UNK
     Dates: start: 20080101
  4. KLONOPIN [Concomitant]
     Dosage: UNK
     Dates: start: 20000101
  5. PROTONIX [Concomitant]
     Dosage: UNK
     Dates: start: 20100209
  6. EMEND [Concomitant]
     Dosage: UNK
     Dates: start: 20100209
  7. METOPROLOL [Concomitant]
     Dosage: UNK
     Dates: start: 20100315

REACTIONS (1)
  - UPPER RESPIRATORY TRACT INFECTION [None]
